FAERS Safety Report 23544740 (Version 3)
Quarter: 2024Q1

REPORT INFORMATION
  Report Type: Spontaneous
  Country: US (occurrence: US)
  Receive Date: 20240220
  Receipt Date: 20240307
  Transmission Date: 20240410
  Serious: No
  Sender: FDA-Public Use
  Company Number: US-PFIZER INC-PV202400022353

PATIENT
  Age: 77 Year
  Sex: Female
  Weight: 52.154 kg

DRUGS (2)
  1. IBRANCE [Suspect]
     Active Substance: PALBOCICLIB
     Indication: Breast cancer stage IV
     Dosage: 125 MG/1 TABLET PO DAYS 1-21 OFF 7 DAYS
     Route: 048
  2. IBRANCE [Suspect]
     Active Substance: PALBOCICLIB
     Indication: Breast cancer female

REACTIONS (4)
  - Feeling cold [Unknown]
  - Weight decreased [Unknown]
  - Decreased appetite [Unknown]
  - Lymphadenopathy [Unknown]
